FAERS Safety Report 9139319 (Version 2)
Quarter: 2014Q1

REPORT INFORMATION
  Report Type: Report from Study
  Country: ZA (occurrence: ZA)
  Receive Date: 20130305
  Receipt Date: 20140310
  Transmission Date: 20141002
  Serious: Yes (Hospitalization)
  Sender: FDA-Public Use
  Company Number: PHHY2013ZA021015

PATIENT
  Age: 66 Year
  Sex: Female

DRUGS (3)
  1. ACLASTA [Suspect]
     Indication: OSTEOPOROSIS
     Dosage: 5 MG/100ML
     Route: 042
     Dates: start: 201201
  2. ACLASTA [Suspect]
     Dosage: 5 MG/100ML
     Route: 042
     Dates: start: 2013
  3. VAGIFEM [Concomitant]
     Indication: HORMONE REPLACEMENT THERAPY
     Dosage: UNK UKN, UNK

REACTIONS (8)
  - Diabetes mellitus [Unknown]
  - Monoplegia [Unknown]
  - Dysstasia [Unknown]
  - Nerve injury [Unknown]
  - Movement disorder [Unknown]
  - Cerebrospinal fluid leakage [Unknown]
  - Back pain [Unknown]
  - Pain in extremity [Unknown]
